FAERS Safety Report 8505267-6 (Version None)
Quarter: 2012Q3

REPORT INFORMATION
  Report Type: 
  Country: None (occurrence: None)
  Receive Date: 20120712
  Receipt Date: 20120703
  Transmission Date: 20120928
  Serious: Yes (Death)
  Sender: FDA-Public Use
  Company Number: AU-JNJFOC-20100304211

PATIENT
  Age: 41 Year
  Sex: Female

DRUGS (6)
  1. NORDIAZEPAM [Concomitant]
     Route: 065
  2. IBUPROFEN [Concomitant]
     Route: 065
  3. CITALOPRAM HYDROBROMIDE [Interacting]
     Indication: PRODUCT USED FOR UNKNOWN INDICATION
     Route: 065
  4. TRAMADOL HCL [Suspect]
     Indication: PRODUCT USED FOR UNKNOWN INDICATION
     Route: 065
  5. CODEINE SULFATE [Concomitant]
     Route: 065
  6. DIAZEPAM [Concomitant]
     Route: 065

REACTIONS (4)
  - ACCIDENTAL OVERDOSE [None]
  - SEROTONIN SYNDROME [None]
  - TOXICITY TO VARIOUS AGENTS [None]
  - DRUG INTERACTION [None]
